FAERS Safety Report 14053894 (Version 1)
Quarter: 2017Q4

REPORT INFORMATION
  Report Type: Spontaneous
  Country: US (occurrence: None)
  Receive Date: 20171006
  Receipt Date: 20171006
  Transmission Date: 20180321
  Serious: Yes (Death)
  Sender: FDA-Public Use
  Company Number: None

PATIENT
  Age: 54 Year

DRUGS (1)
  1. COPAXONE [Suspect]
     Active Substance: GLATIRAMER ACETATE
     Dosage: 40MG 3 TIMES A WEEK SUB-Q
     Route: 058
     Dates: start: 20130314

REACTIONS (1)
  - Death [None]

NARRATIVE: CASE EVENT DATE: 201710
